FAERS Safety Report 5176252-X (Version None)
Quarter: 2006Q4

REPORT INFORMATION
  Report Type: 
  Country: None (occurrence: None)
  Receive Date: 20061121
  Receipt Date: 20061108
  Transmission Date: 20070319
  Serious: Yes (Other)
  Sender: FDA-Public Use
  Company Number: 061109-0001009

PATIENT
  Age: 27 Year
  Sex: Female

DRUGS (1)
  1. PANHEMATIN [Suspect]
     Indication: PORPHYRIA
     Dosage: IV
     Route: 042
     Dates: start: 20061101

REACTIONS (3)
  - FREE HAEMOGLOBIN PRESENT [None]
  - HAEMOLYSIS [None]
  - RED BLOOD CELLS URINE [None]
